FAERS Safety Report 19783434 (Version 1)
Quarter: 2021Q3

REPORT INFORMATION
  Report Type: Spontaneous
  Country: US (occurrence: US)
  Receive Date: 20210903
  Receipt Date: 20210903
  Transmission Date: 20211014
  Serious: No
  Sender: FDA-Public Use
  Company Number: US-ALLERGAN-2128209US

PATIENT
  Age: 37 Year
  Sex: Male

DRUGS (1)
  1. TESTOSTERONE ? BP [Suspect]
     Active Substance: TESTOSTERONE
     Indication: PRODUCT USED FOR UNKNOWN INDICATION
     Dosage: UNK %
     Route: 065
     Dates: start: 2021

REACTIONS (1)
  - Breath alcohol test positive [Recovered/Resolved]

NARRATIVE: CASE EVENT DATE: 20210709
